FAERS Safety Report 16424793 (Version 2)
Quarter: 2019Q4

REPORT INFORMATION
  Report Type: Spontaneous
  Country: FR (occurrence: FR)
  Receive Date: 20190613
  Receipt Date: 20191025
  Transmission Date: 20200122
  Serious: Yes (Other)
  Sender: FDA-Public Use
  Company Number: FR-PFIZER INC-2019248725

PATIENT
  Age: 38 Year
  Sex: Female

DRUGS (2)
  1. DALACINE [Suspect]
     Active Substance: CLINDAMYCIN
     Indication: ABSCESS
     Dosage: UNK
     Route: 042
     Dates: start: 20190427, end: 20190513
  2. TAZOCILLINE [Suspect]
     Active Substance: PIPERACILLIN SODIUM\TAZOBACTAM SODIUM
     Indication: ABSCESS
     Dosage: UNK
     Route: 042
     Dates: start: 20190425, end: 20190513

REACTIONS (4)
  - Pyrexia [Not Recovered/Not Resolved]
  - Rash [Not Recovered/Not Resolved]
  - Neutropenia [Recovered/Resolved]
  - Pruritus [Not Recovered/Not Resolved]

NARRATIVE: CASE EVENT DATE: 20190513
